FAERS Safety Report 7603287-7 (Version None)
Quarter: 2011Q3

REPORT INFORMATION
  Report Type: 
  Country: None (occurrence: None)
  Receive Date: 20110712
  Receipt Date: 20110629
  Transmission Date: 20111222
  Serious: Yes (Other)
  Sender: FDA-Public Use
  Company Number: PHFR2011GB02652

PATIENT
  Sex: Female

DRUGS (3)
  1. CLOZAPINE [Suspect]
     Indication: SCHIZOPHRENIA
     Dosage: UNK MG,
     Route: 048
     Dates: start: 19990421
  2. CLOZAPINE [Suspect]
     Dosage: 100 MG, BID
     Route: 048
  3. CLOZAPINE [Suspect]
     Dosage: 25 MG, BID
     Route: 048

REACTIONS (4)
  - DRUG DISPENSING ERROR [None]
  - INCORRECT DOSE ADMINISTERED [None]
  - SEDATION [None]
  - MEDICATION ERROR [None]
